FAERS Safety Report 6133197-6 (Version None)
Quarter: 2009Q1

REPORT INFORMATION
  Report Type: 
  Country: None (occurrence: None)
  Receive Date: 20090325
  Receipt Date: 20090325
  Transmission Date: 20090719
  Serious: Yes (Other)
  Sender: FDA-Public Use
  Company Number: None

PATIENT
  Age: 32 Year
  Sex: Male
  Weight: 78.0187 kg

DRUGS (2)
  1. CHANTIX [Suspect]
     Indication: SMOKING CESSATION THERAPY
     Dosage: 0.5 MG QDAY PO
     Route: 048
     Dates: start: 20090112, end: 20090308
  2. CHANTIX [Suspect]
     Dosage: 1 MG BID OTIC
     Route: 001

REACTIONS (2)
  - HYPOMANIA [None]
  - INSOMNIA [None]
